FAERS Safety Report 6757796-3 (Version None)
Quarter: 2010Q2

REPORT INFORMATION
  Report Type: 
  Country: None (occurrence: None)
  Receive Date: 20100607
  Receipt Date: 20100607
  Transmission Date: 20101027
  Serious: Yes (Hospitalization)
  Sender: FDA-Public Use
  Company Number: None

PATIENT
  Sex: Female
  Weight: 9.0719 kg

DRUGS (2)
  1. CONCENTRATED TYLENOL INFANT DROPS [Suspect]
  2. CONCENTRATED TYLENOL INFANT DROPS [Suspect]

REACTIONS (5)
  - CONDITION AGGRAVATED [None]
  - FEBRILE CONVULSION [None]
  - PRODUCT QUALITY ISSUE [None]
  - PYREXIA [None]
  - RESPIRATORY ARREST [None]
